FAERS Safety Report 13747484 (Version 1)
Quarter: 2017Q3

REPORT INFORMATION
  Report Type: Spontaneous
  Country: GR (occurrence: GR)
  Receive Date: 20170712
  Receipt Date: 20170712
  Transmission Date: 20171127
  Serious: Yes (Death)
  Sender: FDA-Public Use
  Company Number: GR-ACORDA-ACO_139494_2017

PATIENT
  Sex: Female

DRUGS (2)
  1. QUTENZA [Suspect]
     Active Substance: CAPSAICIN
     Dosage: 1 DF, UNKNOWN FREQ.
     Route: 003
     Dates: start: 20161026, end: 20161026
  2. QUTENZA [Suspect]
     Active Substance: CAPSAICIN
     Indication: NEURALGIA
     Dosage: 2 DF, UNKNOWN FREQ.
     Route: 003
     Dates: start: 20150626, end: 20150626

REACTIONS (1)
  - General physical health deterioration [Fatal]
